FAERS Safety Report 7380813-7 (Version None)
Quarter: 2011Q1

REPORT INFORMATION
  Report Type: 
  Country: None (occurrence: None)
  Receive Date: 20110329
  Receipt Date: 20110323
  Transmission Date: 20110831
  Serious: Yes (Death)
  Sender: FDA-Public Use
  Company Number: A0919490A

PATIENT
  Sex: Male
  Weight: 63 kg

DRUGS (2)
  1. ZANAMIVIR [Suspect]
     Dosage: 150MG TWICE PER DAY
     Route: 042
     Dates: start: 20110117
  2. INTUBATION [Concomitant]

REACTIONS (1)
  - DEATH [None]
